FAERS Safety Report 4831338-1 (Version None)
Quarter: 2005Q4

REPORT INFORMATION
  Report Type: 
  Country: None (occurrence: None)
  Receive Date: 20051118
  Receipt Date: 20050620
  Transmission Date: 20060501
  Serious: Yes (Other)
  Sender: FDA-Public Use
  Company Number: FR-BRISTOL-MYERS SQUIBB COMPANY-13010152

PATIENT
  Age: 45 Year
  Sex: Male
  Weight: 63 kg

DRUGS (5)
  1. REYATAZ [Suspect]
     Indication: HIV INFECTION
     Route: 048
     Dates: start: 20041105, end: 20050310
  2. NORVIR [Concomitant]
     Dates: start: 20041105
  3. ZIAGEN [Concomitant]
     Dates: start: 20041105, end: 20041112
  4. EMTRIVA [Concomitant]
     Dates: start: 20041105
  5. VIDEX [Concomitant]
     Dates: start: 20041113

REACTIONS (5)
  - ABDOMINAL PAIN [None]
  - ALANINE AMINOTRANSFERASE INCREASED [None]
  - ASPARTATE AMINOTRANSFERASE INCREASED [None]
  - COUGH [None]
  - PYREXIA [None]
